FAERS Safety Report 17468329 (Version 1)
Quarter: 2020Q1

REPORT INFORMATION
  Report Type: Spontaneous
  Country: US (occurrence: US)
  Receive Date: 20200227
  Receipt Date: 20200227
  Transmission Date: 20200409
  Serious: Yes (Other)
  Sender: FDA-Public Use
  Company Number: None

PATIENT
  Sex: Male

DRUGS (1)
  1. PREGABALIN 200MG CAPSULES [Suspect]
     Active Substance: PREGABALIN

REACTIONS (3)
  - Swelling [None]
  - Pain [None]
  - Drug ineffective [None]
